FAERS Safety Report 4377296-8 (Version None)
Quarter: 2004Q2

REPORT INFORMATION
  Report Type: 
  Country: None (occurrence: None)
  Receive Date: 20040609
  Receipt Date: 20040318
  Transmission Date: 20050107
  Serious: No
  Sender: FDA-Public Use
  Company Number: 2004203019US

PATIENT
  Age: 68 Year
  Sex: Female
  Weight: 73 kg

DRUGS (8)
  1. BEXTRA [Suspect]
     Indication: ARTHRITIS
     Dosage: 20 MG, QD, ORAL
     Route: 048
     Dates: start: 20031101, end: 20031201
  2. CHEMOTHERAPY () [Suspect]
     Indication: BREAST CANCER
     Dosage: WEEKLY, IV
     Route: 042
     Dates: start: 19980101, end: 20030101
  3. SYNTHROID [Concomitant]
  4. NEXIUM [Concomitant]
  5. VASOTEC [Concomitant]
  6. HYDROCODONE (HYDROCODONE) [Concomitant]
  7. PHENERGAN ^SPECIA^ [Concomitant]
  8. PREVACID [Concomitant]

REACTIONS (2)
  - ACTIVATED PARTIAL THROMBOPLASTIN TIME PROLONGED [None]
  - HYPERSENSITIVITY [None]
